FAERS Safety Report 12484453 (Version 1)
Quarter: 2016Q2

REPORT INFORMATION
  Report Type: Spontaneous
  Country: US (occurrence: None)
  Receive Date: 20160620
  Receipt Date: 20160620
  Transmission Date: 20160815
  Serious: Yes (Other)
  Sender: FDA-Public Use
  Company Number: None

PATIENT
  Age: 77 Year
  Sex: Male
  Weight: 77.11 kg

DRUGS (16)
  1. ATORVASTATIN [Concomitant]
     Active Substance: ATORVASTATIN
  2. NEOPOLY/HC OPTIC [Concomitant]
  3. CENTRUM SILVER [Concomitant]
     Active Substance: MINERALS\VITAMINS
  4. ERIVEDGE [Suspect]
     Active Substance: VISMODEGIB
     Indication: BASAL CELL CARCINOMA
     Route: 048
     Dates: start: 20160222, end: 20160529
  5. SENNA [Concomitant]
     Active Substance: SENNA LEAF\SENNOSIDES\SENNOSIDES A AND B
  6. METROPOLOL [Concomitant]
     Active Substance: METOPROLOL
  7. DIGOXIN. [Concomitant]
     Active Substance: DIGOXIN
  8. PROBIOTIC [Concomitant]
     Active Substance: PROBIOTICS NOS
  9. DOCUSATE [Concomitant]
     Active Substance: DOCUSATE
  10. CALCIUM [Concomitant]
     Active Substance: CALCIUM
  11. PANTOPRAZOLE [Concomitant]
     Active Substance: PANTOPRAZOLE SODIUM
  12. FUROSEMIDE. [Concomitant]
     Active Substance: FUROSEMIDE
  13. ASPIRIN. [Concomitant]
     Active Substance: ASPIRIN
  14. AMLODIPINE [Concomitant]
     Active Substance: AMLODIPINE BESYLATE
  15. ERIVEDGE [Suspect]
     Active Substance: VISMODEGIB
     Indication: PROPHYLAXIS
     Route: 048
     Dates: start: 20160222, end: 20160529
  16. PROBIOTIC [Concomitant]
     Active Substance: PROBIOTICS NOS

REACTIONS (4)
  - Pain [None]
  - Weight decreased [None]
  - Muscle spasms [None]
  - Ageusia [None]

NARRATIVE: CASE EVENT DATE: 20160316
